FAERS Safety Report 8848774 (Version 2)
Quarter: 2012Q4

REPORT INFORMATION
  Report Type: 
  Country: IE (occurrence: IE)
  Receive Date: 20121018
  Receipt Date: 20121102
  Transmission Date: 20130627
  Serious: Yes (Other)
  Sender: FDA-Public Use
  Company Number: IE-PFIZER INC-2012257593

PATIENT
  Age: 8 Year
  Sex: Female

DRUGS (1)
  1. PROVIN [Suspect]
     Indication: PAIN
     Dosage: UNK
     Route: 065

REACTIONS (1)
  - Coeliac disease [Unknown]
